FAERS Safety Report 6482845-X (Version None)
Quarter: 2009Q4

REPORT INFORMATION
  Report Type: 
  Country: None (occurrence: None)
  Receive Date: 20091209
  Receipt Date: 20091201
  Transmission Date: 20100525
  Serious: Yes (Hospitalization, Other)
  Sender: FDA-Public Use
  Company Number: GB-JNJFOC-20091200664

PATIENT
  Age: 24 Year
  Sex: Male

DRUGS (7)
  1. TOPAMAX [Suspect]
     Indication: EPILEPSY
     Route: 048
     Dates: start: 20090317, end: 20091021
  2. DOMPERIDONE [Concomitant]
     Route: 065
  3. LACTULOSE [Concomitant]
     Route: 065
  4. LAMOTRIGINE [Concomitant]
     Route: 065
  5. MIDAZOLAM HCL [Concomitant]
     Route: 065
  6. NULYTELY [Concomitant]
     Route: 065
  7. TRIMETHOPRIM [Concomitant]
     Route: 065

REACTIONS (4)
  - CONSTIPATION [None]
  - HEPATIC FAILURE [None]
  - NEPHROLITHIASIS [None]
  - UROSEPSIS [None]
